FAERS Safety Report 8247015-3 (Version None)
Quarter: 2012Q1

REPORT INFORMATION
  Report Type: 
  Country: None (occurrence: None)
  Receive Date: 20120330
  Receipt Date: 20120330
  Transmission Date: 20120608
  Serious: No
  Sender: FDA-Public Use
  Company Number: None

PATIENT
  Age: 65 Year
  Sex: Female
  Weight: 81.646 kg

DRUGS (1)
  1. DIVALPROEX SODIUM [Suspect]
     Indication: SCHIZOAFFECTIVE DISORDER
     Dosage: 1000MG
     Route: 048
     Dates: start: 20100105, end: 20100110

REACTIONS (3)
  - PRODUCT SUBSTITUTION ISSUE [None]
  - VOMITING [None]
  - NAUSEA [None]
